FAERS Safety Report 4422587-5 (Version None)
Quarter: 2004Q3

REPORT INFORMATION
  Report Type: 
  Country: None (occurrence: None)
  Receive Date: 20040713
  Receipt Date: 20040219
  Transmission Date: 20050211
  Serious: No
  Sender: FDA-Public Use
  Company Number: PHEH2004US02144

PATIENT
  Age: 60 Year
  Sex: Female

DRUGS (1)
  1. ELIDEL [Suspect]
     Dosage: QD, TOPICAL
     Route: 061

REACTIONS (4)
  - DYSPHONIA [None]
  - NASAL CONGESTION [None]
  - NASOPHARYNGITIS [None]
  - PHARYNGOLARYNGEAL PAIN [None]
